FAERS Safety Report 14668043 (Version 1)
Quarter: 2018Q1

REPORT INFORMATION
  Report Type: Spontaneous
  Country: US (occurrence: US)
  Receive Date: 20180322
  Receipt Date: 20180322
  Transmission Date: 20180509
  Serious: Yes (Other)
  Sender: FDA-Public Use
  Company Number: US-PFIZER INC-2018116807

PATIENT
  Age: 9 Decade
  Sex: Female

DRUGS (1)
  1. MYLOTARG [Suspect]
     Active Substance: GEMTUZUMAB OZOGAMICIN
     Indication: ACUTE MYELOID LEUKAEMIA (IN REMISSION)
     Dosage: 3 MG/M2, (ON DAYS 1,4,7)

REACTIONS (2)
  - Systemic infection [Unknown]
  - Febrile neutropenia [Unknown]
